FAERS Safety Report 7551433-6 (Version None)
Quarter: 2011Q2

REPORT INFORMATION
  Report Type: 
  Country: None (occurrence: None)
  Receive Date: 20110616
  Receipt Date: 20110610
  Transmission Date: 20111010
  Serious: Yes (Hospitalization)
  Sender: FDA-Public Use
  Company Number: BR-ROCHE-781702

PATIENT
  Sex: Female
  Weight: 59 kg

DRUGS (6)
  1. TOCILIZUMAB [Suspect]
     Route: 042
     Dates: start: 20101101, end: 20101101
  2. TOCILIZUMAB [Suspect]
     Dosage: FORM: INFUSION
     Route: 042
     Dates: start: 20100601
  3. TOCILIZUMAB [Suspect]
     Route: 042
     Dates: start: 20100801
  4. TOCILIZUMAB [Suspect]
     Route: 042
     Dates: start: 20101001
  5. TOCILIZUMAB [Suspect]
     Route: 042
     Dates: start: 20100701
  6. TOCILIZUMAB [Suspect]
     Route: 042
     Dates: start: 20100901

REACTIONS (2)
  - PYODERMA GANGRENOSUM [None]
  - THROMBOSIS [None]
